FAERS Safety Report 24971449 (Version 1)
Quarter: 2025Q1

REPORT INFORMATION
  Report Type: Spontaneous
  Country: US (occurrence: None)
  Receive Date: 20250214
  Receipt Date: 20250214
  Transmission Date: 20250409
  Serious: Yes (Hospitalization)
  Sender: FDA-CTU
  Company Number: None

PATIENT
  Age: 9 Year
  Sex: Male

DRUGS (2)
  1. ADVATE [Suspect]
     Active Substance: ANTIHEMOPHILIC FACTOR, HUMAN RECOMBINANT
     Indication: Factor VIII deficiency
     Route: 042
     Dates: start: 202412
  2. NORMI\L SALINE FLUSH (10ML) [Concomitant]

REACTIONS (1)
  - Intra-abdominal haemorrhage [None]

NARRATIVE: CASE EVENT DATE: 20250203
